FAERS Safety Report 20685349 (Version 6)
Quarter: 2024Q2

REPORT INFORMATION
  Report Type: Spontaneous
  Country: US (occurrence: US)
  Receive Date: 20220407
  Receipt Date: 20240521
  Transmission Date: 20240716
  Serious: No
  Sender: FDA-Public Use
  Company Number: US-PFIZER INC-202101786890

PATIENT
  Age: 37 Year
  Sex: Female

DRUGS (8)
  1. IBRANCE [Suspect]
     Active Substance: PALBOCICLIB
     Indication: Breast cancer female
     Dosage: DAILY X 21 DAYS THEN 7 DAYS OFF
     Route: 048
     Dates: start: 20210913
  2. IBRANCE [Suspect]
     Active Substance: PALBOCICLIB
     Dosage: 1 DAILY ON DAYS 1 THROUGH 21 OF EACH 28
     Dates: start: 20210913
  3. IBRANCE [Suspect]
     Active Substance: PALBOCICLIB
     Dosage: 1 TABLET BY MOUTH DAILY ON DAYS 1 THROUGH 21 OF EACH 28 DAY CYCLE
     Route: 048
     Dates: start: 20210913, end: 202405
  4. LUPRON DEPOT-PED [Concomitant]
     Active Substance: LEUPROLIDE ACETATE
     Dosage: 11.25 MG (11.25 MG KIT)
  5. MELATONIN [Concomitant]
     Active Substance: MELATONIN
     Dosage: 10 MG
  6. PAXIL CR [Concomitant]
     Active Substance: PAROXETINE HYDROCHLORIDE
     Dosage: 10 MG
  7. BIOTIN [Concomitant]
     Active Substance: BIOTIN
     Dosage: 1 MG
  8. ANASTROZOLE [Concomitant]
     Active Substance: ANASTROZOLE
     Dosage: 1 MG

REACTIONS (6)
  - White blood cell count decreased [Recovering/Resolving]
  - Influenza [Unknown]
  - Pharyngitis streptococcal [Unknown]
  - Full blood count decreased [Recovering/Resolving]
  - COVID-19 [Unknown]
  - Laboratory test abnormal [Unknown]
